FAERS Safety Report 10650281 (Version 2)
Quarter: 2015Q1

REPORT INFORMATION
  Report Type: Spontaneous
  Country: US (occurrence: US)
  Receive Date: 20141212
  Receipt Date: 20150220
  Transmission Date: 20150720
  Serious: Yes (Death, Other)
  Sender: FDA-Public Use
  Company Number: US-CUBIST PHARMACEUTICALS, INC.-2014CBST001630

PATIENT

DRUGS (155)
  1. CUBICIN [Suspect]
     Active Substance: DAPTOMYCIN
     Dosage: 500 MG, Q24H
     Route: 042
     Dates: start: 20141018, end: 20141119
  2. HYDROCODONE BITARTRATE AND ACETAMINOPHEN [Concomitant]
     Active Substance: ACETAMINOPHEN\HYDROCODONE BITARTRATE
     Indication: PAIN
     Dosage: 1-2 TABLETS EVERY 4-6 HOURS PRN
     Route: 048
  3. XYLOCAINE WITH EPINEPHRINE [Concomitant]
     Active Substance: EPINEPHRINE BITARTRATE\LIDOCAINE HYDROCHLORIDE
     Indication: PRODUCT USED FOR UNKNOWN INDICATION
     Dosage: 1:100,000, UNK
     Route: 065
     Dates: start: 20141114, end: 20141114
  4. NORMAL SALINE [Concomitant]
     Active Substance: SODIUM CHLORIDE
     Dosage: 0.9 % AS FLUSH, BID
     Route: 065
     Dates: start: 20141119, end: 20141119
  5. PROTONIX [Concomitant]
     Active Substance: PANTOPRAZOLE SODIUM
     Indication: PRODUCT USED FOR UNKNOWN INDICATION
     Dosage: 40 MG, BEFORE BREAKFAST
     Route: 065
     Dates: start: 20141115, end: 20141118
  6. ULTANE [Concomitant]
     Active Substance: SEVOFLURANE
     Indication: PRODUCT USED FOR UNKNOWN INDICATION
     Dosage: UNK UNK, UNK
     Route: 065
     Dates: start: 20141114, end: 20141114
  7. ASPIRIN. [Concomitant]
     Active Substance: ASPIRIN
     Dosage: 325 MG, QD (ONCE A DAY)
     Route: 065
     Dates: start: 20141117, end: 20141118
  8. POTASSIUM CHLORIDE. [Concomitant]
     Active Substance: POTASSIUM CHLORIDE
     Indication: PRODUCT USED FOR UNKNOWN INDICATION
     Dosage: 10 MEQ, BID
     Route: 065
     Dates: start: 20141116, end: 20141118
  9. ATIVAN [Concomitant]
     Active Substance: LORAZEPAM
     Indication: PRODUCT USED FOR UNKNOWN INDICATION
     Dosage: 4 MG/2ML, Q4H
     Route: 065
     Dates: start: 20141119, end: 20141123
  10. SOLU-CORTEF [Concomitant]
     Active Substance: HYDROCORTISONE SODIUM SUCCINATE
     Indication: PRODUCT USED FOR UNKNOWN INDICATION
     Dosage: 50 MG, Q8H
     Route: 065
     Dates: start: 20141119, end: 20141119
  11. REGLAN [Concomitant]
     Active Substance: METOCLOPRAMIDE HYDROCHLORIDE
     Indication: PRODUCT USED FOR UNKNOWN INDICATION
     Dosage: 5 MG/1ML, Q8H
     Route: 065
     Dates: start: 20141119, end: 20141128
  12. RENVELA [Concomitant]
     Active Substance: SEVELAMER CARBONATE
     Dosage: 800 MG, TID
     Route: 065
     Dates: start: 20141120, end: 20141121
  13. AMPHOJEL                           /00057401/ [Concomitant]
     Indication: PRODUCT USED FOR UNKNOWN INDICATION
     Dosage: 5 ML, Q8H
     Route: 065
     Dates: start: 20141121, end: 20141128
  14. MANNITOL. [Concomitant]
     Active Substance: MANNITOL
     Indication: PRODUCT USED FOR UNKNOWN INDICATION
     Dosage: 25 % OF CONCENTRATION 12.5GM/50ML, UNK
     Route: 065
     Dates: start: 20141124, end: 20141124
  15. MANNITOL. [Concomitant]
     Active Substance: MANNITOL
     Dosage: 25 GM/100ML, UNK
     Route: 065
     Dates: start: 20141124, end: 20141128
  16. ZOFRAN                             /00955301/ [Concomitant]
     Active Substance: ONDANSETRON HYDROCHLORIDE
     Indication: PROCEDURAL NAUSEA
     Dosage: 4 MG/2ML, PRN
     Route: 065
     Dates: start: 20141114, end: 20141115
  17. LIP MEDEX [Concomitant]
     Indication: CHAPPED LIPS
     Dosage: UNK UNK, PRN
     Route: 065
     Dates: start: 20141114, end: 20141128
  18. PURELAN [Concomitant]
     Indication: CHAPPED LIPS
     Dosage: UNK UNK, PRN
     Route: 065
     Dates: start: 20141114, end: 20141128
  19. PROVENTIL [Concomitant]
     Active Substance: ALBUTEROL
     Indication: DYSPNOEA
     Dosage: 2.5MG/3ML, PRN
     Route: 045
     Dates: start: 20141114, end: 20141128
  20. SODIUM CHLORIDE. [Concomitant]
     Active Substance: SODIUM CHLORIDE
     Dosage: 200 ML, UNK
     Route: 065
     Dates: start: 20141120, end: 20141128
  21. DEXTROSE IN WATER [Concomitant]
     Indication: PRODUCT USED FOR UNKNOWN INDICATION
     Dosage: 1000 ML, UNK
     Route: 051
     Dates: start: 20141119, end: 20141119
  22. PROLIA [Concomitant]
     Active Substance: DENOSUMAB
     Indication: PRODUCT USED FOR UNKNOWN INDICATION
     Dosage: 60 MG, EVERY 6 MONTHS
     Route: 065
  23. THROMBOGEN [Concomitant]
     Active Substance: THROMBIN
     Indication: PRODUCT USED FOR UNKNOWN INDICATION
     Dosage: 5000 UT, UNK
     Route: 065
     Dates: start: 20141114, end: 20141114
  24. NORMAL SALINE [Concomitant]
     Active Substance: SODIUM CHLORIDE
     Dosage: 10 ML FLUSH, PRN
     Route: 065
     Dates: start: 20141117, end: 20141128
  25. PROSTIGMIN                         /00045903/ [Concomitant]
     Dosage: 3 MG/3ML, UNK
     Route: 065
     Dates: start: 20141114, end: 20141114
  26. HEPARIN SODIUM PORCINE [Concomitant]
     Active Substance: HEPARIN SODIUM
     Dosage: 5000 UNIT/0.5ML, Q8H
     Route: 065
     Dates: start: 20141124, end: 20141128
  27. ANECTINE [Concomitant]
     Active Substance: SUCCINYLCHOLINE CHLORIDE
     Indication: PRODUCT USED FOR UNKNOWN INDICATION
     Dosage: 20 MG/ML, UNK
     Route: 065
     Dates: start: 20141117, end: 20141117
  28. SENNA-S                            /00936101/ [Concomitant]
     Indication: CONSTIPATION
     Dosage: 1 TABLET, PRN
     Route: 065
     Dates: start: 20141114, end: 20141118
  29. PHENERGAN [Concomitant]
     Active Substance: PROMETHAZINE HYDROCHLORIDE
     Indication: NAUSEA
     Dosage: 12.5MG/0.5ML, PRN
     Route: 065
     Dates: start: 20141114, end: 20141120
  30. STERILE WATER [Concomitant]
     Active Substance: WATER
     Indication: PRODUCT USED FOR UNKNOWN INDICATION
     Dosage: 10-60 ML, PRN
     Route: 065
     Dates: start: 20141119, end: 20141128
  31. LEVOPHED [Concomitant]
     Active Substance: NOREPINEPHRINE BITARTRATE
     Dosage: 8 MCG/ ML, UNK
     Route: 065
     Dates: start: 20141120, end: 20141120
  32. LEVOPHED [Concomitant]
     Active Substance: NOREPINEPHRINE BITARTRATE
     Dosage: 4000 MCG/500 ML, ONCE
     Route: 065
     Dates: start: 20141125, end: 20141125
  33. SODIUM BICARBONATE. [Concomitant]
     Active Substance: SODIUM BICARBONATE
     Dosage: 150 MEQ/500 ML, UNK
     Route: 065
     Dates: start: 20141119, end: 20141120
  34. APLISOL [Concomitant]
     Active Substance: TUBERCULIN PURIFIED PROTEIN DERIVATIVE
     Indication: PRODUCT USED FOR UNKNOWN INDICATION
     Dosage: 5 UNIT/0.1 ML, ONCE
     Route: 065
     Dates: start: 20141125, end: 20141125
  35. PREDNISONE. [Concomitant]
     Active Substance: PREDNISONE
     Indication: PRODUCT USED FOR UNKNOWN INDICATION
     Dosage: 5 MG, 1 TABLET IN THE MORNING AND 2.5 MG 1 TABLET AT NIGHT
     Route: 048
     Dates: start: 20141114, end: 20141118
  36. LASIX [Concomitant]
     Active Substance: FUROSEMIDE
     Indication: PRODUCT USED FOR UNKNOWN INDICATION
     Dosage: 40MG/4ML, UNK
     Route: 065
     Dates: start: 20141116, end: 20141116
  37. LASIX [Concomitant]
     Active Substance: FUROSEMIDE
     Dosage: 40MG/4ML, ONCE
     Route: 065
     Dates: start: 20141118, end: 20141118
  38. SUBLIMAZE                          /00174602/ [Concomitant]
     Dosage: 2500MCG/50 ML, UNK
     Route: 065
     Dates: start: 20141120, end: 20141128
  39. VERSED [Concomitant]
     Active Substance: MIDAZOLAM HYDROCHLORIDE
     Indication: PRODUCT USED FOR UNKNOWN INDICATION
     Dosage: 2MG/2ML, UNK
     Route: 065
     Dates: start: 20141115, end: 20141115
  40. SOLU-CORTEF [Concomitant]
     Active Substance: HYDROCORTISONE SODIUM SUCCINATE
     Dosage: 50 MG, Q8H
     Route: 065
     Dates: start: 20141119, end: 20141119
  41. SOLU-CORTEF [Concomitant]
     Active Substance: HYDROCORTISONE SODIUM SUCCINATE
     Dosage: 30 MG/0.24 ML, Q12H
     Route: 065
     Dates: start: 20141118, end: 20141119
  42. MILK OF MAGNESIA [Concomitant]
     Active Substance: MAGNESIUM HYDROXIDE
     Indication: CONSTIPATION
     Dosage: 10 ML, PRN
     Route: 065
     Dates: start: 20141114, end: 20141118
  43. MILK OF MAGNESIA [Concomitant]
     Active Substance: MAGNESIUM HYDROXIDE
     Dosage: 10 ML, PRN
     Route: 065
     Dates: start: 20141114, end: 20141117
  44. DULCOLAX (BISACODYL) [Concomitant]
     Active Substance: BISACODYL
     Dosage: 10 MG, PRN
     Route: 065
     Dates: start: 20141117, end: 20141128
  45. ZOFRAN                             /00955301/ [Concomitant]
     Active Substance: ONDANSETRON HYDROCHLORIDE
     Dosage: 4 MG/2ML, PRN
     Route: 065
     Dates: start: 20141117, end: 20141118
  46. PHENERGAN [Concomitant]
     Active Substance: PROMETHAZINE HYDROCHLORIDE
     Dosage: 12.5 MG/0.5 ML, PRN
     Route: 065
     Dates: start: 20141117, end: 20141128
  47. SODIUM CHLORIDE. [Concomitant]
     Active Substance: SODIUM CHLORIDE
     Dosage: 500 ML, UNK
     Route: 065
     Dates: start: 20141120, end: 20141121
  48. SODIUM CHLORIDE. [Concomitant]
     Active Substance: SODIUM CHLORIDE
     Dosage: 100 ML, UNK
     Route: 065
     Dates: start: 20141118, end: 20141128
  49. SODIUM CHLORIDE. [Concomitant]
     Active Substance: SODIUM CHLORIDE
     Dosage: 50 ML, UNK
     Route: 065
     Dates: start: 20141124, end: 20141124
  50. SODIUM CHLORIDE. [Concomitant]
     Active Substance: SODIUM CHLORIDE
     Dosage: 250 ML, Q24H
     Route: 065
     Dates: start: 20141126, end: 20141127
  51. SODIUM BICARBONATE. [Concomitant]
     Active Substance: SODIUM BICARBONATE
     Indication: PRODUCT USED FOR UNKNOWN INDICATION
     Dosage: 150 MEQ/500 ML, UNK
     Route: 065
     Dates: start: 20141119, end: 20141119
  52. CATHFLO ACTIVASE [Concomitant]
     Active Substance: ALTEPLASE
     Dosage: 2 MG, ONCE
     Route: 065
     Dates: start: 20141116, end: 20141116
  53. DIFLUCAN [Concomitant]
     Active Substance: FLUCONAZOLE
     Dosage: 400 MCG/200 ML, ONCE
     Route: 065
     Dates: start: 20141126, end: 20141128
  54. CUBICIN [Suspect]
     Active Substance: DAPTOMYCIN
     Dosage: 6.4 MG/KG, Q48H
     Route: 042
     Dates: start: 20141119, end: 20141121
  55. PNEUMOVAX 23 [Concomitant]
     Active Substance: PNEUMOCOCCAL VACCINE, POLYVALENT 23
     Indication: PRODUCT USED FOR UNKNOWN INDICATION
     Dosage: 25 MCG/0.5 ML, ONCE
     Route: 065
     Dates: start: 20141115, end: 20141115
  56. NORMAL SALINE [Concomitant]
     Active Substance: SODIUM CHLORIDE
     Indication: PRODUCT USED FOR UNKNOWN INDICATION
     Dosage: 0.9 % AS FLUSH, UNK
     Route: 065
     Dates: start: 20141114, end: 20141114
  57. NORMAL SALINE [Concomitant]
     Active Substance: SODIUM CHLORIDE
     Dosage: 2 ML-5 ML FLUSH, Q8H
     Route: 065
     Dates: start: 20141119, end: 20141119
  58. NORMAL SALINE [Concomitant]
     Active Substance: SODIUM CHLORIDE
     Dosage: 10 ML FLUSH, PRN
     Route: 065
     Dates: start: 20141114, end: 20141120
  59. SUBLIMAZE                          /00174602/ [Concomitant]
     Dosage: 50MCG/ML, UNK
     Route: 065
     Dates: start: 20141119, end: 20141119
  60. PERIDEX [Concomitant]
     Active Substance: CHLORHEXIDINE GLUCONATE
     Indication: PRODUCT USED FOR UNKNOWN INDICATION
     Dosage: 15 ML, Q12H
     Route: 065
     Dates: start: 20141119, end: 20141119
  61. NORCURON [Concomitant]
     Active Substance: VECURONIUM BROMIDE
     Indication: PRODUCT USED FOR UNKNOWN INDICATION
     Dosage: 10 MG, SINGLE
     Route: 065
     Dates: start: 20141119, end: 20141119
  62. VANCOMYCIN [Concomitant]
     Active Substance: VANCOMYCIN
     Indication: PRODUCT USED FOR UNKNOWN INDICATION
     Dosage: UNK UNK, UNK
     Route: 065
     Dates: start: 20141126, end: 20141128
  63. TYLENOL [Concomitant]
     Active Substance: ACETAMINOPHEN
     Indication: PYREXIA
     Dosage: 650 MG TABLET, PRN
     Route: 048
     Dates: start: 20141114, end: 20141118
  64. SENNA-S                            /00936101/ [Concomitant]
     Dosage: 1 TABLET, PRN
     Route: 065
     Dates: start: 20141117, end: 20141121
  65. PERCOCET [Concomitant]
     Active Substance: ACETAMINOPHEN\OXYCODONE HYDROCHLORIDE
     Indication: PAIN
     Dosage: 1 TABLET, PRN
     Route: 065
     Dates: start: 20141114, end: 20141118
  66. MORPHINE [Concomitant]
     Active Substance: MORPHINE
     Indication: PAIN
     Dosage: 4MG/1ML, PRN
     Route: 065
     Dates: start: 20141114, end: 20141128
  67. PHENERGAN [Concomitant]
     Active Substance: PROMETHAZINE HYDROCHLORIDE
     Dosage: 25 MG/1 ML, PRN
     Route: 065
     Dates: start: 20141117, end: 20141128
  68. MAALOX PLUS EXTRA STRENGTH [Concomitant]
     Indication: DYSPEPSIA
     Dosage: 30 ML, PRN
     Route: 065
     Dates: start: 20141114, end: 20141118
  69. SODIUM CHLORIDE. [Concomitant]
     Active Substance: SODIUM CHLORIDE
     Dosage: 225 ML, UNK
     Route: 065
     Dates: start: 20141119, end: 20141120
  70. LEVOPHED [Concomitant]
     Active Substance: NOREPINEPHRINE BITARTRATE
     Indication: PRODUCT USED FOR UNKNOWN INDICATION
     Dosage: 8 MCG/ML, UNK
     Route: 065
     Dates: start: 20141119, end: 20141119
  71. DIPRIVAN [Concomitant]
     Active Substance: PROPOFOL
     Dosage: 10 MG/ML, UNK
     Dates: start: 20141119, end: 20141119
  72. DEXTROSE IN WATER [Concomitant]
     Dosage: 1000 ML, UNK
     Route: 051
     Dates: start: 20141120, end: 20141121
  73. ALBUMINAR-25 [Concomitant]
     Active Substance: ALBUMIN (HUMAN)
     Dosage: 100 ML, PRN
     Route: 065
     Dates: start: 20141124, end: 20141124
  74. CUBICIN [Suspect]
     Active Substance: DAPTOMYCIN
     Dosage: 500 MG, Q48H
     Route: 042
     Dates: start: 20141119, end: 20141121
  75. MULTIVITAMIN                       /00097801/ [Concomitant]
     Active Substance: VITAMINS
     Indication: PRODUCT USED FOR UNKNOWN INDICATION
     Dosage: 1 TABLET, QD (ONCE A DAY)
     Route: 065
     Dates: start: 20141114, end: 20141118
  76. NORMAL SALINE [Concomitant]
     Active Substance: SODIUM CHLORIDE
     Dosage: 0.9 % AS IRRIGATION, UNK
     Route: 065
     Dates: start: 20141114, end: 20141114
  77. BACITRACIN. [Concomitant]
     Active Substance: BACITRACIN
     Indication: PRODUCT USED FOR UNKNOWN INDICATION
     Dosage: 50000 UT, UNK
     Route: 065
     Dates: start: 20141114, end: 20141114
  78. PROTONIX [Concomitant]
     Active Substance: PANTOPRAZOLE SODIUM
     Dosage: 40 MG, Q24H
     Route: 065
     Dates: start: 20141118, end: 20141128
  79. PROTONIX [Concomitant]
     Active Substance: PANTOPRAZOLE SODIUM
     Dosage: 40 MG, Q24H
     Route: 065
     Dates: start: 20141119, end: 20141119
  80. ROBINUL [Concomitant]
     Active Substance: GLYCOPYRROLATE
     Indication: PRODUCT USED FOR UNKNOWN INDICATION
     Dosage: 0.2 MG/ML, UNK
     Route: 065
     Dates: start: 20141114, end: 20141114
  81. ZEMURON [Concomitant]
     Active Substance: ROCURONIUM BROMIDE
     Indication: PRODUCT USED FOR UNKNOWN INDICATION
     Dosage: 10 MG/ML, UNK
     Route: 065
     Dates: start: 20141114, end: 20141114
  82. ASPIRIN. [Concomitant]
     Active Substance: ASPIRIN
     Indication: PRODUCT USED FOR UNKNOWN INDICATION
     Dosage: 325 MG, QD (ONCE A DAY)
     Route: 065
     Dates: start: 20141116, end: 20141116
  83. PERIDEX [Concomitant]
     Active Substance: CHLORHEXIDINE GLUCONATE
     Dosage: 15 ML, Q12H
     Route: 065
     Dates: start: 20141119, end: 20141119
  84. ATIVAN [Concomitant]
     Active Substance: LORAZEPAM
     Dosage: 2 MG/1ML, Q1H
     Route: 065
     Dates: start: 20141128, end: 20141128
  85. ATROVENT [Concomitant]
     Active Substance: IPRATROPIUM BROMIDE
     Indication: PRODUCT USED FOR UNKNOWN INDICATION
     Dosage: 500 MCG/2.5ML, Q6H
     Route: 065
     Dates: start: 20141119, end: 20141128
  86. NORCURON [Concomitant]
     Active Substance: VECURONIUM BROMIDE
     Dosage: 10 MG, SINGLE
     Route: 065
     Dates: start: 20141119, end: 20141119
  87. RENVELA [Concomitant]
     Active Substance: SEVELAMER CARBONATE
     Indication: PRODUCT USED FOR UNKNOWN INDICATION
     Dosage: 800 MG, TID
     Route: 065
     Dates: start: 20141120, end: 20141120
  88. SOLU-MEDROL [Concomitant]
     Active Substance: METHYLPREDNISOLONE SODIUM SUCCINATE
     Indication: PRODUCT USED FOR UNKNOWN INDICATION
     Dosage: 120 MG/1.92 ML, Q8H
     Route: 065
     Dates: start: 20141125, end: 20141127
  89. VANCOMYCIN [Concomitant]
     Active Substance: VANCOMYCIN
     Dosage: 1 G, Q24H
     Route: 065
     Dates: start: 20141126, end: 20141127
  90. NORCO [Concomitant]
     Active Substance: ACETAMINOPHEN\HYDROCODONE BITARTRATE
     Dosage: 1-2 TABLET, PRN
     Route: 065
     Dates: start: 20141114, end: 20141118
  91. TYLENOL [Concomitant]
     Active Substance: ACETAMINOPHEN
     Dosage: 650 MG (SUPPOSITORY), PRN
     Route: 054
     Dates: start: 20151114, end: 20141128
  92. TYLENOL [Concomitant]
     Active Substance: ACETAMINOPHEN
     Dosage: 650 MG (SUPPOSITORY), PRN
     Route: 065
     Dates: start: 20151117, end: 20141118
  93. PHENERGAN [Concomitant]
     Active Substance: PROMETHAZINE HYDROCHLORIDE
     Dosage: 25 MG/1 ML, PRN
     Route: 065
     Dates: start: 20141114, end: 20141120
  94. NICOTROL [Concomitant]
     Active Substance: NICOTINE
     Indication: PRODUCT USED FOR UNKNOWN INDICATION
     Dosage: 10 MG, PRN (INHALATION)
     Dates: start: 20141114, end: 20141118
  95. PROVENTIL [Concomitant]
     Active Substance: ALBUTEROL
     Indication: WHEEZING
  96. SODIUM CHLORIDE. [Concomitant]
     Active Substance: SODIUM CHLORIDE
     Dosage: 500 ML, UNK
     Route: 065
     Dates: start: 20141114, end: 20141114
  97. SODIUM CHLORIDE. [Concomitant]
     Active Substance: SODIUM CHLORIDE
     Dosage: 100 ML, UNK
     Route: 065
     Dates: start: 20141118, end: 20141119
  98. LEVOPHED [Concomitant]
     Active Substance: NOREPINEPHRINE BITARTRATE
     Dosage: 4000 MCG/500 ML, UNK
     Route: 065
     Dates: start: 20141119, end: 20141120
  99. DIPRIVAN [Concomitant]
     Active Substance: PROPOFOL
     Indication: PRODUCT USED FOR UNKNOWN INDICATION
     Dosage: 10 MG/ML, UNK
     Dates: start: 20141114, end: 20141114
  100. CATHFLO ACTIVASE [Concomitant]
     Active Substance: ALTEPLASE
     Indication: PRODUCT USED FOR UNKNOWN INDICATION
     Dosage: 2 MG, ONCE
     Route: 065
     Dates: start: 20141116, end: 20141116
  101. CUBICIN [Suspect]
     Active Substance: DAPTOMYCIN
     Indication: POSTOPERATIVE WOUND INFECTION
     Dosage: 6.4 MG/KG, Q24H
     Route: 042
     Dates: start: 20141018, end: 20141119
  102. LEVAQUIN [Concomitant]
     Active Substance: LEVOFLOXACIN
     Indication: PNEUMONIA
     Dosage: 750MG/150ML IN D5W, Q24H
     Route: 042
     Dates: start: 20141116, end: 20141117
  103. PRINIVIL [Concomitant]
     Active Substance: LISINOPRIL
     Indication: PRODUCT USED FOR UNKNOWN INDICATION
     Dosage: 10 MG, QD (ONCE A DAY)
     Route: 048
     Dates: start: 20141114, end: 20141118
  104. NORMAL SALINE [Concomitant]
     Active Substance: SODIUM CHLORIDE
     Dosage: 0.9 % AS IRRIGATION, UNK
     Route: 065
     Dates: start: 20141114, end: 20141114
  105. NORMAL SALINE [Concomitant]
     Active Substance: SODIUM CHLORIDE
     Dosage: 10 ML FLUSH, PRN
     Route: 065
     Dates: start: 20141119, end: 20141128
  106. NORMAL SALINE [Concomitant]
     Active Substance: SODIUM CHLORIDE
     Dosage: 2-3 ML FLUSH, PRN
     Route: 065
     Dates: start: 20141119, end: 20141119
  107. SUBLIMAZE                          /00174602/ [Concomitant]
     Indication: PRODUCT USED FOR UNKNOWN INDICATION
     Dosage: 250MCG/5ML, UNK
     Route: 065
     Dates: start: 20141115, end: 20141115
  108. SUBLIMAZE                          /00174602/ [Concomitant]
     Dosage: 1250MCG/25ML, UNK
     Route: 065
     Dates: start: 20141119, end: 20141120
  109. HEPARIN SODIUM PORCINE [Concomitant]
     Active Substance: HEPARIN SODIUM
     Indication: PRODUCT USED FOR UNKNOWN INDICATION
     Dosage: 5000 UNIT/0.5ML, Q12H
     Route: 065
     Dates: start: 20141119, end: 20141124
  110. HEPARIN SODIUM PORCINE [Concomitant]
     Active Substance: HEPARIN SODIUM
     Dosage: 500 UNIT/5ML, PRN
     Route: 065
     Dates: start: 20141124, end: 20141128
  111. TYLENOL [Concomitant]
     Active Substance: ACETAMINOPHEN
     Indication: HEADACHE
     Dosage: 650 MG TABLET, PRN
     Route: 048
     Dates: start: 20141114, end: 20141118
  112. DULCOLAX (BISACODYL) [Concomitant]
     Active Substance: BISACODYL
     Dosage: 10 MG, PRN
     Route: 065
     Dates: start: 20141114, end: 20141120
  113. PERCOCET [Concomitant]
     Active Substance: ACETAMINOPHEN\OXYCODONE HYDROCHLORIDE
     Dosage: 2 TABLET, PRN
     Route: 065
     Dates: start: 20141114, end: 20141118
  114. DILAUDID [Concomitant]
     Active Substance: HYDROMORPHONE HYDROCHLORIDE
     Indication: BREAKTHROUGH PAIN
     Dosage: 1MG/1ML, PRN
     Route: 065
     Dates: start: 20141114, end: 20141118
  115. AMBIEN [Concomitant]
     Active Substance: ZOLPIDEM TARTRATE
     Indication: INSOMNIA
     Dosage: 5 MG, PRN
     Route: 065
     Dates: start: 20141114, end: 20141118
  116. CEPACOL SORE THROAT                /00793801/ [Concomitant]
     Indication: OROPHARYNGEAL PAIN
     Dosage: 1 LOZENGE, PRN
     Route: 065
     Dates: start: 20141114, end: 20141121
  117. SODIUM CHLORIDE. [Concomitant]
     Active Substance: SODIUM CHLORIDE
     Dosage: 500 ML, UNK
     Route: 065
     Dates: start: 20141125, end: 20141128
  118. SODIUM CHLORIDE. [Concomitant]
     Active Substance: SODIUM CHLORIDE
     Dosage: 100 ML, ONCE
     Route: 065
     Dates: start: 20141118, end: 20141118
  119. LACTATED RINGERS [Concomitant]
     Active Substance: CALCIUM CHLORIDE\POTASSIUM CHLORIDE\SODIUM CHLORIDE\SODIUM LACTATE
     Indication: PRODUCT USED FOR UNKNOWN INDICATION
     Dosage: 1000 ML, UNK
     Route: 065
     Dates: start: 20141114, end: 20141114
  120. NEO-SYNEPHRINE                     /00116302/ [Concomitant]
     Indication: PRODUCT USED FOR UNKNOWN INDICATION
     Dosage: 10 MG/ML, UNK
     Route: 065
     Dates: start: 20141117, end: 20141117
  121. LEVOPHED [Concomitant]
     Active Substance: NOREPINEPHRINE BITARTRATE
     Dosage: 8 MG/ ML, UNK
     Route: 065
     Dates: start: 20141120, end: 20141128
  122. DIPRIVAN [Concomitant]
     Active Substance: PROPOFOL
     Dosage: 10 MG/1ML, UNK
     Dates: start: 20141119, end: 20141128
  123. DEXTROSE IN WATER [Concomitant]
     Dosage: 492 ML, UNK
     Route: 051
     Dates: start: 20141120, end: 20141120
  124. SODIUM BICARBONATE. [Concomitant]
     Active Substance: SODIUM BICARBONATE
     Dosage: 150 MEQ/500 ML, UNK
     Route: 065
     Dates: start: 20141120, end: 20141121
  125. ALBUMINAR-25 [Concomitant]
     Active Substance: ALBUMIN (HUMAN)
     Indication: DIALYSIS
     Dosage: 100 ML, Q48H
     Route: 065
     Dates: start: 20141118, end: 20141124
  126. DDAVP                              /00361901/ [Concomitant]
     Indication: PRODUCT USED FOR UNKNOWN INDICATION
     Dosage: 30 MCG/7.5 ML, ONCE
     Route: 065
     Dates: start: 20141124, end: 20141124
  127. DIFLUCAN [Concomitant]
     Active Substance: FLUCONAZOLE
     Indication: PRODUCT USED FOR UNKNOWN INDICATION
     Dosage: 800 MCG/400 ML, ONCE
     Route: 065
     Dates: start: 20141125, end: 20141125
  128. ROCEPHIN [Concomitant]
     Active Substance: CEFTRIAXONE SODIUM
     Indication: POSTOPERATIVE WOUND INFECTION
     Dosage: 2 G, Q24H
     Route: 042
     Dates: start: 20141114, end: 20141125
  129. LEVAQUIN [Concomitant]
     Active Substance: LEVOFLOXACIN
     Dosage: 500MG/100ML, Q48H
     Route: 042
     Dates: start: 20141123, end: 20141128
  130. PROSTIGMIN                         /00045903/ [Concomitant]
     Indication: PRODUCT USED FOR UNKNOWN INDICATION
     Dosage: 1 MG/ML, UNK
     Route: 065
     Dates: start: 20141114, end: 20141114
  131. VERSED [Concomitant]
     Active Substance: MIDAZOLAM HYDROCHLORIDE
     Dosage: 1MG/ML, UNK
     Route: 065
     Dates: start: 20141119, end: 20141119
  132. SOLU-CORTEF [Concomitant]
     Active Substance: HYDROCORTISONE SODIUM SUCCINATE
     Dosage: 50 MG, Q8H
     Route: 065
     Dates: start: 20141119, end: 20141125
  133. NORCO [Concomitant]
     Active Substance: ACETAMINOPHEN\HYDROCODONE BITARTRATE
     Indication: PAIN
     Dosage: 1-2 TABLET, PRN
     Route: 065
     Dates: start: 20141114, end: 20141114
  134. NORCO [Concomitant]
     Active Substance: ACETAMINOPHEN\HYDROCODONE BITARTRATE
     Dosage: 2 TABLET, PRN
     Route: 065
     Dates: start: 20141114, end: 20141114
  135. MILK OF MAGNESIA [Concomitant]
     Active Substance: MAGNESIUM HYDROXIDE
     Dosage: 10 ML, PRN
     Route: 065
     Dates: start: 20141117, end: 20141121
  136. DULCOLAX (BISACODYL) [Concomitant]
     Active Substance: BISACODYL
     Indication: CONSTIPATION
     Dosage: 10 MG, PRN
     Route: 065
     Dates: start: 20141114, end: 20141118
  137. BENADRYL [Concomitant]
     Active Substance: DIPHENHYDRAMINE HYDROCHLORIDE
     Indication: PRURITUS
     Dosage: 25 MG/0.5ML, PRN
     Route: 065
     Dates: start: 20141114, end: 20141128
  138. BENADRYL [Concomitant]
     Active Substance: DIPHENHYDRAMINE HYDROCHLORIDE
     Dosage: 25 MG/0.5ML, PRN
     Route: 065
     Dates: start: 20141117, end: 20141119
  139. STERILE WATER [Concomitant]
     Active Substance: WATER
     Dosage: UNK UNK, UNK
     Route: 065
     Dates: start: 20141119, end: 20141119
  140. SODIUM CHLORIDE. [Concomitant]
     Active Substance: SODIUM CHLORIDE
     Dosage: 100 ML, Q24H
     Route: 065
     Dates: start: 20141119, end: 20141119
  141. ROCEPHIN [Concomitant]
     Active Substance: CEFTRIAXONE SODIUM
     Dosage: 1 G, Q24H
     Route: 042
     Dates: start: 20141114, end: 20141114
  142. ROCEPHIN [Concomitant]
     Active Substance: CEFTRIAXONE SODIUM
     Dosage: 2 G, Q12H
     Route: 065
     Dates: start: 20141125, end: 20141128
  143. LEVAQUIN [Concomitant]
     Active Substance: LEVOFLOXACIN
     Dosage: 750MG/150ML IN D5W, Q24H
     Route: 042
     Dates: start: 20141119, end: 20141121
  144. NORMAL SALINE [Concomitant]
     Active Substance: SODIUM CHLORIDE
     Dosage: 0.9 % AS FLUSH, BID
     Route: 065
     Dates: start: 20141118, end: 20141120
  145. NORMAL SALINE [Concomitant]
     Active Substance: SODIUM CHLORIDE
     Dosage: 2 ML-5 ML FLUSH, Q8H
     Route: 065
     Dates: start: 20141119, end: 20141119
  146. NORMAL SALINE [Concomitant]
     Active Substance: SODIUM CHLORIDE
     Dosage: 10-20 ML FLUSH, PRN
     Route: 065
     Dates: start: 20141124, end: 20141128
  147. PROTONIX [Concomitant]
     Active Substance: PANTOPRAZOLE SODIUM
     Dosage: 40 MG, BEFORE BREAKFAST
     Route: 065
     Dates: start: 20141118, end: 20141118
  148. LASIX [Concomitant]
     Active Substance: FUROSEMIDE
     Dosage: 40MG/4ML, Q12H
     Route: 065
     Dates: start: 20141116, end: 20141118
  149. SUPRANE [Concomitant]
     Active Substance: DESFLURANE
     Indication: PRODUCT USED FOR UNKNOWN INDICATION
     Dosage: UNK UNK, UNK
     Route: 065
     Dates: start: 20141125, end: 20141125
  150. DURAGESIC [Concomitant]
     Active Substance: FENTANYL
     Indication: PRODUCT USED FOR UNKNOWN INDICATION
     Dosage: 1 PATCH, Q72H
     Route: 065
     Dates: start: 20141128, end: 20141128
  151. TYLENOL [Concomitant]
     Active Substance: ACETAMINOPHEN
     Dosage: 650 MG TABLET, PRN
     Route: 048
     Dates: start: 20141117, end: 20141118
  152. MORPHINE [Concomitant]
     Active Substance: MORPHINE
     Dosage: 5MG/0.625ML, PRN
     Route: 065
     Dates: start: 20141128, end: 20141128
  153. SODIUM CHLORIDE. [Concomitant]
     Active Substance: SODIUM CHLORIDE
     Indication: PRODUCT USED FOR UNKNOWN INDICATION
     Dosage: 1000 ML, UNK
     Route: 065
     Dates: start: 20141114, end: 20141116
  154. DEXTROSE IN WATER [Concomitant]
     Dosage: 1000 ML, UNK
     Route: 051
     Dates: start: 20141119, end: 20141120
  155. DEXTROSE IN WATER [Concomitant]
     Dosage: 492 ML, UNK
     Route: 051
     Dates: start: 20141120, end: 20141128

REACTIONS (8)
  - Eosinophilic pneumonia [Unknown]
  - Renal failure [Fatal]
  - Acute respiratory distress syndrome [Unknown]
  - Fungal infection [Unknown]
  - Respiratory failure [Fatal]
  - Impaired healing [Unknown]
  - Leukocytosis [Unknown]
  - Multi-organ failure [Fatal]

NARRATIVE: CASE EVENT DATE: 20141114
